FAERS Safety Report 5906119-8 (Version None)
Quarter: 2008Q4

REPORT INFORMATION
  Report Type: 
  Country: None (occurrence: None)
  Receive Date: 20081002
  Receipt Date: 20080925
  Transmission Date: 20090506
  Serious: Yes (Other)
  Sender: FDA-Public Use
  Company Number: PHHY2008FR23033

PATIENT
  Age: 40 Year
  Sex: Male

DRUGS (7)
  1. NEORAL [Suspect]
     Indication: RENAL TRANSPLANT
     Dosage: 100 MG/DAY
     Route: 048
  2. NEORAL [Suspect]
     Indication: PROPHYLAXIS AGAINST TRANSPLANT REJECTION
  3. TAREG [Suspect]
     Indication: HYPERTENSION
     Dosage: 1 TAB/DAY
     Route: 065
     Dates: start: 20080801
  4. CELLCEPT [Suspect]
     Indication: RENAL TRANSPLANT
     Dosage: 1000 MG/DAY
     Route: 065
  5. CELLCEPT [Suspect]
     Indication: PROPHYLAXIS AGAINST TRANSPLANT REJECTION
  6. MONO-TILDIEM [Suspect]
     Indication: HYPERTENSION
     Dosage: 1 TAB/DAY
     Route: 065
     Dates: start: 20080801
  7. TENORMIN [Concomitant]
     Indication: HYPERTENSION
     Dosage: 100 MG/DAY

REACTIONS (6)
  - BLOOD CREATININE INCREASED [None]
  - DISTURBANCE IN ATTENTION [None]
  - HEADACHE [None]
  - HYPERTENSION [None]
  - NEUROSIS [None]
  - PERSECUTORY DELUSION [None]
